FAERS Safety Report 8114084-0 (Version None)
Quarter: 2012Q1

REPORT INFORMATION
  Report Type: 
  Country: None (occurrence: None)
  Receive Date: 20120203
  Receipt Date: 20110121
  Transmission Date: 20120608
  Serious: Yes (Other)
  Sender: FDA-Public Use
  Company Number: PHHY2011US05345

PATIENT
  Age: 76 Year
  Sex: Female

DRUGS (1)
  1. EXELON [Suspect]
     Indication: DEMENTIA ALZHEIMER'S TYPE
     Dosage: 9.5 MG, UNK
     Route: 062

REACTIONS (5)
  - INCORRECT DOSE ADMINISTERED [None]
  - NAUSEA [None]
  - CHOLINERGIC SYNDROME [None]
  - VOMITING [None]
  - ABDOMINAL PAIN [None]
